FAERS Safety Report 17957439 (Version 1)
Quarter: 2020Q2

REPORT INFORMATION
  Report Type: Spontaneous
  Country: CN (occurrence: CN)
  Receive Date: 20200629
  Receipt Date: 20200629
  Transmission Date: 20200714
  Serious: Yes (Life-Threatening, Other)
  Sender: FDA-Public Use
  Company Number: CN-PFIZER INC-2020246852

PATIENT
  Age: 65 Year
  Sex: Male
  Weight: 68 kg

DRUGS (5)
  1. SODIUM CHLORIDE. [Concomitant]
     Active Substance: SODIUM CHLORIDE
     Indication: VEHICLE SOLUTION USE
     Dosage: 250 ML, 1X/DAY
     Route: 041
     Dates: start: 20200601, end: 20200607
  2. CYTOSAR [Suspect]
     Active Substance: CYTARABINE
     Indication: ACUTE MONOCYTIC LEUKAEMIA
     Dosage: 150 MG, CYCLIC (ONCE A DAY FOR D1-D7)
     Route: 041
     Dates: start: 20200601, end: 20200607
  3. ZAVEDOS [Suspect]
     Active Substance: IDARUBICIN
     Indication: ACUTE MONOCYTIC LEUKAEMIA
     Dosage: 10 MG, CYCLIC (ONCE A DAY D1, D3)
     Route: 040
     Dates: start: 20200601, end: 20200603
  4. DECITABINE. [Suspect]
     Active Substance: DECITABINE
     Indication: ACUTE MONOCYTIC LEUKAEMIA
     Dosage: 10 MG, 1X/DAY
     Route: 041
     Dates: start: 20200601, end: 20200607
  5. STERILE WATER [Concomitant]
     Active Substance: WATER
     Indication: VEHICLE SOLUTION USE
     Dosage: 40 ML, ALTERNATE DAY
     Route: 040
     Dates: start: 20200601, end: 20200603

REACTIONS (3)
  - Bone marrow failure [Recovering/Resolving]
  - Pruritus [Recovering/Resolving]
  - Rash [Recovering/Resolving]

NARRATIVE: CASE EVENT DATE: 20200607
